FAERS Safety Report 26216158 (Version 1)
Quarter: 2025Q4

REPORT INFORMATION
  Report Type: Spontaneous
  Country: CA (occurrence: CA)
  Receive Date: 20251231
  Receipt Date: 20251231
  Transmission Date: 20260118
  Serious: Yes (Other)
  Sender: AUROBINDO
  Company Number: CA-AUROBINDO-AUR-APL-2025-068231

PATIENT
  Age: 74 Year
  Sex: Female

DRUGS (14)
  1. GABAPENTIN [Suspect]
     Active Substance: GABAPENTIN
     Indication: Product used for unknown indication
     Dosage: UNK, 3 TIMES A DAY
     Route: 065
  2. GABAPENTIN [Suspect]
     Active Substance: GABAPENTIN
     Dosage: UNK, ONCE A DAY
     Route: 065
  3. CALCIUM [Suspect]
     Active Substance: CALCIUM
     Indication: Product used for unknown indication
     Route: 065
  4. IRON [Suspect]
     Active Substance: IRON
     Indication: Haemoglobin decreased
     Dosage: UNK, 0.5 DOSAGE FORM
     Route: 065
  5. KEVZARA [Suspect]
     Active Substance: SARILUMAB
     Indication: Rheumatoid arthritis
     Dosage: 200 MILLIGRAM, ONCE EVERY 2 WEEKS
  6. ACTEMRA [Concomitant]
     Active Substance: TOCILIZUMAB
     Indication: Product used for unknown indication
     Route: 065
  7. AMLODIPINE [Concomitant]
     Active Substance: AMLODIPINE BESYLATE
     Indication: Hypertension
     Dosage: UNK, ONCE A DAY
     Route: 065
  8. ENBREL [Concomitant]
     Active Substance: ETANERCEPT
     Indication: Product used for unknown indication
     Route: 065
  9. HUMIRA [Concomitant]
     Active Substance: ADALIMUMAB
     Indication: Product used for unknown indication
  10. HYDROXYCHLOROQUINE [Concomitant]
     Active Substance: HYDROXYCHLOROQUINE
     Indication: Product used for unknown indication
     Route: 065
  11. LATANOPROST [Concomitant]
     Active Substance: LATANOPROST
     Indication: Product used for unknown indication
     Route: 065
  12. Orrencia [Concomitant]
     Indication: Product used for unknown indication
     Route: 065
  13. SULFASALAZINE [Concomitant]
     Active Substance: SULFASALAZINE
     Indication: Product used for unknown indication
     Route: 065
  14. VITAMIN D3 [Concomitant]
     Active Substance: CHOLECALCIFEROL
     Indication: Product used for unknown indication
     Dosage: UNK, ONCE EVERY WEEK.
     Route: 065

REACTIONS (35)
  - Abdominal pain upper [Unknown]
  - Arthralgia [Unknown]
  - Bell^s palsy [Unknown]
  - Blood test abnormal [Unknown]
  - Bone pain [Unknown]
  - Constipation [Unknown]
  - Dry mouth [Unknown]
  - Ear pain [Unknown]
  - Facial paralysis [Unknown]
  - Gait disturbance [Unknown]
  - Generalised oedema [Unknown]
  - Haemoglobin decreased [Unknown]
  - Haemorrhoids [Unknown]
  - Head discomfort [Unknown]
  - Headache [Unknown]
  - Hypertension [Unknown]
  - Injection site erythema [Unknown]
  - Injection site rash [Unknown]
  - Injury associated with device [Unknown]
  - Joint swelling [Unknown]
  - Muscle spasms [Unknown]
  - Musculoskeletal pain [Unknown]
  - Neck pain [Unknown]
  - Osteoarthritis [Unknown]
  - Pain [Unknown]
  - Pain in extremity [Unknown]
  - Peripheral swelling [Unknown]
  - Pruritus [Unknown]
  - Rheumatoid arthritis [Unknown]
  - Skin burning sensation [Unknown]
  - Sleep disorder due to a general medical condition [Unknown]
  - Vitamin D decreased [Unknown]
  - Weight increased [Unknown]
  - Wrong technique in device usage process [Unknown]
  - Drug ineffective [Unknown]
